FAERS Safety Report 5059728-5 (Version None)
Quarter: 2006Q3

REPORT INFORMATION
  Report Type: 
  Country: None (occurrence: None)
  Receive Date: 20060724
  Receipt Date: 20060621
  Transmission Date: 20061208
  Serious: Yes (Hospitalization)
  Sender: FDA-Public Use
  Company Number: JP-MERCK-0606USA05034

PATIENT
  Age: 83 Year
  Sex: Female

DRUGS (9)
  1. PEPCID RPD [Suspect]
     Indication: GASTRIC ULCER
     Route: 048
     Dates: end: 20060619
  2. [THERAPY UNSPECIFIED] [Concomitant]
     Indication: HYPERAMMONAEMIA
     Route: 048
     Dates: start: 20060410, end: 20060619
  3. FERROMIA [Concomitant]
     Indication: IRON DEFICIENCY ANAEMIA
     Route: 048
     Dates: start: 20060410, end: 20060619
  4. CINAL [Concomitant]
     Indication: IRON DEFICIENCY ANAEMIA
     Route: 048
     Dates: start: 20060410, end: 20060619
  5. LASIX [Concomitant]
     Indication: HEPATIC CIRRHOSIS
     Route: 048
     Dates: end: 20060619
  6. ALDACTONE [Concomitant]
     Indication: HEPATIC CIRRHOSIS
     Route: 048
     Dates: end: 20060619
  7. LACTULOSE [Concomitant]
     Indication: HYPERAMMONAEMIA
     Route: 048
     Dates: end: 20060619
  8. MAGNESIUM OXIDE [Concomitant]
     Indication: HEPATIC CIRRHOSIS
     Route: 048
     Dates: end: 20060619
  9. NOVORAPID [Concomitant]
     Indication: DIABETES MELLITUS
     Route: 058
     Dates: start: 20060418, end: 20060619

REACTIONS (2)
  - ANOREXIA [None]
  - DEPRESSED LEVEL OF CONSCIOUSNESS [None]
